FAERS Safety Report 8582139-2 (Version None)
Quarter: 2012Q3

REPORT INFORMATION
  Report Type: 
  Country: None (occurrence: None)
  Receive Date: 20120809
  Receipt Date: 20120802
  Transmission Date: 20120928
  Serious: Yes (Life-Threatening)
  Sender: FDA-Public Use
  Company Number: AT-PFIZER INC-2012192907

PATIENT
  Age: 72 Year
  Sex: Male
  Weight: 124 kg

DRUGS (9)
  1. LOVENOX [Concomitant]
     Dosage: 20 MG, 1X/DAY
     Route: 058
     Dates: start: 20120717, end: 20120723
  2. MEROPENEM [Suspect]
     Indication: PANCREATITIS
     Dosage: 1 G, 4X/DAY
     Dates: start: 20120718, end: 20120724
  3. RELISTOR [Concomitant]
     Dosage: 12 MG, 1X/DAY
     Route: 058
  4. PANTOPRAZOLE SODIUM [Suspect]
     Indication: ULCER
     Dosage: 40 MG, 2X/DAY
     Route: 042
     Dates: start: 20120417, end: 20120425
  5. NOVALGIN [Suspect]
     Indication: PAIN
     Dosage: 1 G, 3X/DAY
     Route: 042
     Dates: start: 20120717, end: 20120719
  6. ACTRAPID [Concomitant]
     Dosage: (50 IU)
     Dates: start: 20120717
  7. DIPIDOLOR [Concomitant]
     Dosage: 30 MG (7.5 MG,1 IN 6 HR)
     Route: 042
     Dates: start: 20120717, end: 20120720
  8. RATIOGRASTIM [Concomitant]
     Dosage: 1 DF, 1X/DAY
     Dates: start: 20120720
  9. ARMODAFINIL [Concomitant]
     Dosage: 400 MG, 1X/DAY
     Route: 042
     Dates: start: 20120721, end: 20120725

REACTIONS (2)
  - THROMBOCYTOPENIA [None]
  - AGRANULOCYTOSIS [None]
